FAERS Safety Report 5230777-7 (Version None)
Quarter: 2007Q1

REPORT INFORMATION
  Report Type: 
  Country: None (occurrence: None)
  Receive Date: 20070202
  Receipt Date: 20070119
  Transmission Date: 20070707
  Serious: Yes (Other)
  Sender: FDA-Public Use
  Company Number: 2007S1000075

PATIENT
  Age: 42 Year
  Sex: Male

DRUGS (4)
  1. CUBICIN [Suspect]
     Dosage: 350 MG; Q24H; IV
     Route: 042
     Dates: start: 20061124, end: 20070105
  2. CEFTAZIDIME [Concomitant]
  3. RIFAMPICIN [Concomitant]
  4. VANCOMYCIN HYDROCHLORIDE [Concomitant]

REACTIONS (1)
  - NEUROPATHY PERIPHERAL [None]
